FAERS Safety Report 11217799 (Version 2)
Quarter: 2015Q3

REPORT INFORMATION
  Report Type: Report from Study
  Country: GB (occurrence: GB)
  Receive Date: 20150625
  Receipt Date: 20150910
  Transmission Date: 20151125
  Serious: Yes (Other)
  Sender: FDA-Public Use
  Company Number: GB-ROCHE-1598478

PATIENT
  Age: 59 Year
  Sex: Female

DRUGS (3)
  1. NOVORAPID [Concomitant]
     Active Substance: INSULIN ASPART
     Dosage: ONGOING
     Route: 065
     Dates: start: 20050506
  2. LISINOPRIL. [Concomitant]
     Active Substance: LISINOPRIL
     Dosage: ONGOING
     Route: 065
     Dates: start: 20100209
  3. RANIBIZUMAB [Suspect]
     Active Substance: RANIBIZUMAB
     Indication: NEOVASCULAR AGE-RELATED MACULAR DEGENERATION
     Route: 050
     Dates: start: 20130812, end: 20141205

REACTIONS (6)
  - Nasal dryness [Unknown]
  - Ear infection [Unknown]
  - Cerebral ischaemia [Not Recovered/Not Resolved]
  - Epistaxis [Unknown]
  - Respiratory tract infection [Recovering/Resolving]
  - Candida infection [Unknown]

NARRATIVE: CASE EVENT DATE: 20141112
